FAERS Safety Report 22188752 (Version 1)
Quarter: 2023Q2

REPORT INFORMATION
  Report Type: Other
  Country: US (occurrence: US)
  Receive Date: 20230409
  Receipt Date: 20230409
  Transmission Date: 20230721
  Serious: Yes (Death)
  Sender: FDA-Public Use
  Company Number: US-ALVOGEN-2023090084

PATIENT
  Age: 42 Year
  Sex: Male

DRUGS (4)
  1. LISINOPRIL [Suspect]
     Active Substance: LISINOPRIL
     Indication: Suicide attempt
  2. GUANFACINE [Suspect]
     Active Substance: GUANFACINE
     Indication: Suicide attempt
  3. LITHIUM [Suspect]
     Active Substance: LITHIUM
     Indication: Suicide attempt
  4. ESCITALOPRAM [Suspect]
     Active Substance: ESCITALOPRAM OXALATE
     Indication: Suicide attempt

REACTIONS (1)
  - Completed suicide [Fatal]
